FAERS Safety Report 9771391 (Version 4)
Quarter: 2014Q1

REPORT INFORMATION
  Report Type: Spontaneous
  Country: US (occurrence: US)
  Receive Date: 20131218
  Receipt Date: 20140325
  Transmission Date: 20141002
  Serious: Yes (Other)
  Sender: FDA-Public Use
  Company Number: US-ROCHE-1321867

PATIENT
  Sex: Male

DRUGS (7)
  1. XOLAIR [Suspect]
     Indication: ASTHMA
     Route: 058
     Dates: start: 20131029, end: 201311
  2. XOLAIR [Suspect]
     Indication: CHRONIC OBSTRUCTIVE PULMONARY DISEASE
  3. XOLAIR [Suspect]
     Indication: EMPHYSEMA
  4. XOLAIR [Suspect]
     Indication: HYPERSENSITIVITY
  5. VENTOLIN [Concomitant]
     Indication: CHRONIC OBSTRUCTIVE PULMONARY DISEASE
     Dosage: 1 PUFF COUPLE TIMES A DAY
     Route: 055
  6. VENTOLIN [Concomitant]
     Indication: EMPHYSEMA
  7. VENTOLIN [Concomitant]
     Indication: ASTHMA

REACTIONS (5)
  - Viral infection [Recovered/Resolved]
  - Influenza like illness [Unknown]
  - Pyrexia [Unknown]
  - Pain [Unknown]
  - Pruritus [Unknown]
